FAERS Safety Report 15616632 (Version 3)
Quarter: 2019Q1

REPORT INFORMATION
  Report Type: Spontaneous
  Country: CA (occurrence: CA)
  Receive Date: 20181114
  Receipt Date: 20190115
  Transmission Date: 20190417
  Serious: Yes (Other)
  Sender: FDA-Public Use
  Company Number: CA-PFIZER INC-2018463042

PATIENT
  Age: 56 Year
  Sex: Male

DRUGS (5)
  1. TELMISARTAN. [Suspect]
     Active Substance: TELMISARTAN
     Dosage: 12.5 MG, DAILY
     Route: 048
  2. CALCIUM CARBONATE. [Suspect]
     Active Substance: CALCIUM CARBONATE
     Dosage: UNK, DAILY
  3. ATIVAN [Suspect]
     Active Substance: LORAZEPAM
     Dosage: 1 MG, 1X/DAY (BEFORE SLEEP)
     Route: 048
  4. VITAMIN D [Suspect]
     Active Substance: CHOLECALCIFEROL
     Dosage: 10000 IU, WEEKLY
  5. ROSUVASTATIN. [Suspect]
     Active Substance: ROSUVASTATIN
     Dosage: 10 MG, DAILY
     Route: 048

REACTIONS (2)
  - Accident at work [Unknown]
  - Growth hormone deficiency [Not Recovered/Not Resolved]

NARRATIVE: CASE EVENT DATE: 201602
